FAERS Safety Report 11505368 (Version 1)
Quarter: 2015Q3

REPORT INFORMATION
  Report Type: Spontaneous
  Country: US (occurrence: US)
  Receive Date: 20150915
  Receipt Date: 20150915
  Transmission Date: 20151125
  Serious: Yes (Other)
  Sender: FDA-Public Use
  Company Number: US-ROCHE-788689

PATIENT
  Sex: Male

DRUGS (4)
  1. PEGASYS [Suspect]
     Active Substance: PEGINTERFERON ALFA-2A
     Indication: CHRONIC HEPATITIS C
     Route: 065
  2. PEGASYS [Suspect]
     Active Substance: PEGINTERFERON ALFA-2A
     Route: 065
  3. RIBAVIRIN. [Suspect]
     Active Substance: RIBAVIRIN
     Indication: CHRONIC HEPATITIS C
     Route: 065
  4. RIBAVIRIN. [Suspect]
     Active Substance: RIBAVIRIN
     Dosage: DOSE: 1000 MG DAILY IN DIVIDED DOSES.
     Route: 065

REACTIONS (9)
  - Drug dependence [Unknown]
  - Anxiety [Unknown]
  - Injection site erythema [Unknown]
  - Homicidal ideation [Unknown]
  - Influenza like illness [Unknown]
  - Depression [Unknown]
  - Dyspnoea [Unknown]
  - Suicidal ideation [Unknown]
  - Headache [Recovering/Resolving]
